FAERS Safety Report 5056124-1 (Version None)
Quarter: 2006Q3

REPORT INFORMATION
  Report Type: 
  Country: None (occurrence: None)
  Receive Date: 20060720
  Receipt Date: 20060503
  Transmission Date: 20061208
  Serious: Yes (Death)
  Sender: FDA-Public Use
  Company Number: US-GLAXOSMITHKLINE-A0604754A

PATIENT
  Age: 61 Year
  Sex: Male
  Weight: 54.5 kg

DRUGS (1)
  1. PAXIL CR [Suspect]
     Indication: DEPRESSION
     Dosage: 12.5MG UNKNOWN
     Route: 048
     Dates: start: 20040501, end: 20040501

REACTIONS (2)
  - COMPLETED SUICIDE [None]
  - VENOUS INJURY [None]
